FAERS Safety Report 5070982-6 (Version None)
Quarter: 2006Q3

REPORT INFORMATION
  Report Type: 
  Country: None (occurrence: None)
  Receive Date: 20060803
  Receipt Date: 20060803
  Transmission Date: 20061208
  Serious: No
  Sender: FDA-Public Use
  Company Number: None

PATIENT
  Age: 64 Year
  Sex: Female

DRUGS (2)
  1. PENLAC [Suspect]
     Dosage: APPLIED DAILY TO AFFECTED NAIL(S) AND REMOVED AT END OF WEEK
     Dates: start: 20050413
  2. FLUOXETINE [Concomitant]

REACTIONS (1)
  - PHARMACEUTICAL PRODUCT COMPLAINT [None]
